FAERS Safety Report 19059749 (Version 1)
Quarter: 2021Q1

REPORT INFORMATION
  Report Type: Spontaneous
  Country: US (occurrence: US)
  Receive Date: 20210326
  Receipt Date: 20210326
  Transmission Date: 20210420
  Serious: Yes (Life-Threatening, Other)
  Sender: FDA-Public Use
  Company Number: US-INSUD PHARMA-2103US00314

PATIENT

DRUGS (5)
  1. METOCLOPRAMIDE. [Interacting]
     Active Substance: METOCLOPRAMIDE
     Indication: VOMITING
  2. METOCLOPRAMIDE. [Interacting]
     Active Substance: METOCLOPRAMIDE
     Indication: NAUSEA
     Dosage: 10 MILLIGRAM
     Route: 042
  3. METHADONE [Interacting]
     Active Substance: METHADONE HYDROCHLORIDE
     Indication: DRUG WITHDRAWAL MAINTENANCE THERAPY
     Dosage: MAINTENANCE
     Route: 065
  4. CEFTRIAXONE. [Concomitant]
     Active Substance: CEFTRIAXONE
     Indication: PNEUMONIA ASPIRATION
     Route: 042
  5. NUVESSA [Suspect]
     Active Substance: METRONIDAZOLE
     Indication: PNEUMONIA ASPIRATION
     Dosage: SLOWLY INFUSED OVER 30 MINUTES
     Route: 042

REACTIONS (4)
  - Drug interaction [Recovered/Resolved]
  - Torsade de pointes [Recovered/Resolved]
  - Ventricular fibrillation [Recovered/Resolved]
  - Unresponsive to stimuli [Recovered/Resolved]
